FAERS Safety Report 5314431-9 (Version None)
Quarter: 2007Q2

REPORT INFORMATION
  Report Type: 
  Country: None (occurrence: None)
  Receive Date: 20070502
  Receipt Date: 20070426
  Transmission Date: 20071010
  Serious: No
  Sender: FDA-Public Use
  Company Number: JP-ELI_LILLY_AND_COMPANY-JP200704004701

PATIENT
  Age: 57 Year
  Sex: Male
  Weight: 43.2 kg

DRUGS (6)
  1. OLANZAPINE [Suspect]
     Indication: SCHIZOPHRENIA, RESIDUAL TYPE
     Dosage: 10 MG, DAILY (1/D)
     Route: 050
  2. QUETIAPINE FUMARATE [Concomitant]
     Indication: SCHIZOPHRENIA, RESIDUAL TYPE
     Dosage: UNK, UNKNOWN
     Route: 065
  3. PEROSPIRONE [Concomitant]
     Indication: SCHIZOPHRENIA, RESIDUAL TYPE
     Dosage: UNK, UNKNOWN
     Route: 065
  4. FLUVOXAMINE MALEATE [Concomitant]
     Indication: SCHIZOPHRENIA, RESIDUAL TYPE
     Dosage: UNK, UNKNOWN
     Route: 065
  5. PAROXETINE [Concomitant]
     Indication: SCHIZOPHRENIA, RESIDUAL TYPE
     Dosage: UNK, UNKNOWN
     Route: 065
  6. CARBAMAZEPINE [Concomitant]
     Indication: SCHIZOPHRENIA, RESIDUAL TYPE
     Dosage: UNK, UNKNOWN
     Route: 065

REACTIONS (5)
  - ANAEMIA [None]
  - BLOOD THYROID STIMULATING HORMONE DECREASED [None]
  - HYPOKALAEMIA [None]
  - HYPOPROTEINAEMIA [None]
  - LIVER DISORDER [None]
